FAERS Safety Report 9305364 (Version 1)
Quarter: 2013Q1

REPORT INFORMATION
  Report Type: Spontaneous
  Country: DK (occurrence: None)
  Receive Date: 20130115
  Receipt Date: 20130115
  Transmission Date: 20140127
  Serious: Yes (Death, Hospitalization)
  Sender: FDA-Public Use
  Company Number: DK-010376

PATIENT
  Age: 60 Year
  Sex: Male

DRUGS (14)
  1. IMOCLONE [Concomitant]
  2. NOVOMIX [Concomitant]
  3. NORITREN [Concomitant]
  4. SARBOTEN [Concomitant]
  5. FIRMAGON [Suspect]
     Indication: PROSTATE CANCER
     Route: 058
     Dates: start: 20110513, end: 20110513
  6. MORPHINE [Concomitant]
  7. CONTALGIN [Concomitant]
  8. NOVOMIX [Concomitant]
  9. PREDNISOLON AGEPHA [Concomitant]
  10. METHADONE [Concomitant]
  11. SERENASE [Concomitant]
  12. DUROGESIC [Concomitant]
  13. LYRICA [Concomitant]
  14. INSTANYL [Concomitant]

REACTIONS (4)
  - Confusional state [None]
  - Anger [None]
  - Pyrexia [None]
  - Respiratory failure [None]
